FAERS Safety Report 7965815-1 (Version None)
Quarter: 2011Q4

REPORT INFORMATION
  Report Type: 
  Country: None (occurrence: None)
  Receive Date: 20111208
  Receipt Date: 20111206
  Transmission Date: 20120403
  Serious: Yes (Hospitalization)
  Sender: FDA-Public Use
  Company Number: FR-ABBOTT-11P-056-0879058-00

PATIENT
  Age: 67 Year
  Sex: Male

DRUGS (4)
  1. PERINDOPRIL [Suspect]
     Indication: HYPERTENSION
     Dosage: REGIMEN #1
     Dates: start: 20010101
  2. SITAGLIPTIN [Suspect]
     Indication: TYPE 2 DIABETES MELLITUS
  3. DICUMAROL [Concomitant]
     Indication: PULMONARY EMBOLISM
  4. METFORMIN HCL [Concomitant]
     Indication: TYPE 2 DIABETES MELLITUS
     Dates: start: 19960101

REACTIONS (3)
  - DYSPHONIA [None]
  - LARYNGEAL OEDEMA [None]
  - DYSPNOEA [None]
